FAERS Safety Report 9515843 (Version 1)
Quarter: 2013Q1

REPORT INFORMATION
  Report Type: Spontaneous
  Country: US (occurrence: None)
  Receive Date: 20130305
  Receipt Date: 20130305
  Transmission Date: 20140127
  Serious: Yes (Other)
  Sender: FDA-Public Use
  Company Number: 163-21880-12120919

PATIENT
  Age: 63 Year
  Sex: Male
  Weight: 108.86 kg

DRUGS (16)
  1. REVLIMID [Suspect]
     Indication: PLASMA CELL MYELOMA
     Route: 048
     Dates: start: 20080722
  2. JANUVIA (SITAGLIPTIN PHOSPHATE) [Concomitant]
  3. LOMOTIL (LOMOTIL) [Concomitant]
  4. GLUCOTROL XL (GLIPIZIDE) [Concomitant]
  5. COUMADIN (WARFARIN SODIUM) [Concomitant]
  6. GLUCOPHAGE (METFORMIN) [Concomitant]
  7. TRIAMCINOLONE (TRIAMCINOLONE) [Concomitant]
  8. NOVOLOG (INSLUIN ASPART) [Concomitant]
  9. ZOVIRAX [Concomitant]
  10. LIBRAX (LIBRAX) [Concomitant]
  11. DEXAMETHASONE (DEXAMETHASONE) [Concomitant]
  12. ROBINUL (GLYCOPYRRONIUM BROMIDE) [Concomitant]
  13. VELCADE (BORTEZOMIB) [Concomitant]
  14. ATENOLOL (ATENOLOL) [Concomitant]
  15. LYRICA (PREGABALIN) [Concomitant]
  16. ASPIRIN [Concomitant]

REACTIONS (1)
  - Full blood count decreased [None]
